FAERS Safety Report 6120946-6 (Version None)
Quarter: 2009Q1

REPORT INFORMATION
  Report Type: 
  Country: None (occurrence: None)
  Receive Date: 20090312
  Receipt Date: 20090312
  Transmission Date: 20090719
  Serious: Yes (Hospitalization)
  Sender: FDA-Public Use
  Company Number: None

PATIENT
  Sex: Male
  Weight: 86.4 kg

DRUGS (2)
  1. CLOFARABINE 20MG GENZYME [Suspect]
     Indication: ACUTE MYELOID LEUKAEMIA RECURRENT
     Dosage: 43 MG D1-5 IV DRIP
     Route: 041
     Dates: start: 20090224, end: 20090228
  2. GENTUZUMAB OZOGAMICIN 5 MG [Suspect]
     Indication: ACUTE MYELOID LEUKAEMIA RECURRENT
     Dosage: 6.5 MG D1,4,7 IV DRIP
     Route: 041
     Dates: start: 20090225, end: 20090303

REACTIONS (1)
  - FEBRILE NEUTROPENIA [None]
